FAERS Safety Report 26115058 (Version 1)
Quarter: 2025Q4

REPORT INFORMATION
  Report Type: Spontaneous
  Country: EU (occurrence: EU)
  Receive Date: 20251203
  Receipt Date: 20251203
  Transmission Date: 20260117
  Serious: Yes (Other)
  Sender: RANBAXY
  Company Number: EU-SUN PHARMACEUTICAL INDUSTRIES LTD-2025RR-538782

PATIENT
  Age: 33 Year
  Sex: Female

DRUGS (2)
  1. IMATINIB [Suspect]
     Active Substance: IMATINIB
     Indication: Chemotherapy
     Dosage: 400 MILLIGRAM, DAILY
     Route: 065
     Dates: start: 20200923, end: 20210924
  2. BOSUTINIB [Suspect]
     Active Substance: BOSUTINIB
     Indication: Chemotherapy
     Dosage: 400 MILLIGRAM, DAILY
     Route: 065
     Dates: start: 20210903, end: 20220303

REACTIONS (2)
  - Drug resistance [Not Recovered/Not Resolved]
  - Gastrointestinal disorder [Unknown]
